FAERS Safety Report 8378370-1 (Version None)
Quarter: 2012Q2

REPORT INFORMATION
  Report Type: 
  Country: None (occurrence: None)
  Receive Date: 20120522
  Receipt Date: 20120507
  Transmission Date: 20120825
  Serious: Yes (Other)
  Sender: FDA-Public Use
  Company Number: CHPA2012US010771

PATIENT
  Age: 61 Year
  Sex: Male

DRUGS (3)
  1. NICOTINE [Suspect]
     Indication: SMOKING CESSATION THERAPY
     Dosage: 21 MG, AS DIRECTED
     Route: 062
     Dates: start: 20100101, end: 20100101
  2. NICOTINE [Suspect]
     Dosage: 14 MG, AS DIRECTED
     Route: 062
     Dates: start: 20100101, end: 20100101
  3. NICOTINE [Suspect]
     Dosage: 7 MG, UNK
     Route: 062
     Dates: start: 20100101, end: 20100101

REACTIONS (3)
  - RESPIRATORY FAILURE [None]
  - APPLICATION SITE ERYTHEMA [None]
  - TREATMENT NONCOMPLIANCE [None]
